FAERS Safety Report 8133156-8 (Version None)
Quarter: 2012Q1

REPORT INFORMATION
  Report Type: 
  Country: None (occurrence: None)
  Receive Date: 20120213
  Receipt Date: 20120208
  Transmission Date: 20120608
  Serious: Yes (Hospitalization)
  Sender: FDA-Public Use
  Company Number: PHHY2012MX007893

PATIENT
  Age: 80 Year
  Sex: Female

DRUGS (5)
  1. EXFORGE [Suspect]
     Indication: HYPERTENSION
     Dosage: 1 DF (160/5 MG), DAILY
     Dates: start: 20080101
  2. OMEPRAZOLE [Concomitant]
     Dosage: 1 DF, DAILY
  3. LYRICA [Concomitant]
  4. NORVASC [Concomitant]
  5. CRESTOR [Concomitant]

REACTIONS (3)
  - LIPOHYPERTROPHY [None]
  - DEPRESSION [None]
  - BACK PAIN [None]
